FAERS Safety Report 18545709 (Version 1)
Quarter: 2020Q4

REPORT INFORMATION
  Report Type: Spontaneous
  Country: US (occurrence: US)
  Receive Date: 20201125
  Receipt Date: 20201125
  Transmission Date: 20210114
  Serious: Yes (Other)
  Sender: FDA-Public Use
  Company Number: None

PATIENT
  Age: 65 Year
  Sex: Female
  Weight: 58.97 kg

DRUGS (1)
  1. ZEJULA [Suspect]
     Active Substance: NIRAPARIB

REACTIONS (1)
  - Insomnia [None]

NARRATIVE: CASE EVENT DATE: 20201124
